FAERS Safety Report 7040671-7 (Version None)
Quarter: 2010Q4

REPORT INFORMATION
  Report Type: 
  Country: None (occurrence: None)
  Receive Date: 20101013
  Receipt Date: 20101006
  Transmission Date: 20110411
  Serious: Yes (Death)
  Sender: FDA-Public Use
  Company Number: DE-AMGEN-QUU442694

PATIENT
  Age: 70 Year
  Sex: Male

DRUGS (1)
  1. ENBREL [Suspect]
     Indication: PSORIASIS
     Route: 058
     Dates: end: 20100401

REACTIONS (4)
  - ASTHENIA [None]
  - CARDIAC DISORDER [None]
  - DEATH [None]
  - HAEMORRHOID OPERATION [None]
